FAERS Safety Report 8913433 (Version 1)
Quarter: 2012Q4

REPORT INFORMATION
  Report Type: Spontaneous
  Country: BR (occurrence: None)
  Receive Date: 20121113
  Receipt Date: 20121113
  Transmission Date: 20130627
  Serious: Yes (Other)
  Sender: FDA-Public Use
  Company Number: DSJ-2012-07601

PATIENT
  Age: 64 Year
  Sex: Female

DRUGS (4)
  1. BENICAR [Suspect]
     Indication: HYPERTENSION
     Dosage: (20 mg, 1 in 1 D)
     Route: 048
     Dates: start: 201202, end: 201204
  2. BENICAR [Suspect]
     Indication: HYPERTENSION
     Dosage: (40 mg, 1 in 1 D)
     Route: 048
     Dates: start: 201204
  3. LEVOTHYROXINE SODIUM (LEVOTHYROXINE SODIUM) (LEVOTHYROXINE SODIUM) [Concomitant]
  4. ATENOLOL (ATENOLOL) (ATENOLOL) [Concomitant]

REACTIONS (2)
  - Drug ineffective [None]
  - Gastrooesophageal reflux disease [None]
